FAERS Safety Report 16917470 (Version 18)
Quarter: 2023Q1

REPORT INFORMATION
  Report Type: Other
  Country: GB (occurrence: GB)
  Receive Date: 20191015
  Receipt Date: 20230111
  Transmission Date: 20230418
  Serious: Yes (Other)
  Sender: FDA-Public Use
  Company Number: GB-002147023-PHHY2019GB213820

PATIENT

DRUGS (37)
  1. OLANZAPINE [Suspect]
     Active Substance: OLANZAPINE
     Indication: Schizophrenia
     Dosage: UNK (MISUSE, ABUSE)(8D3BD646-B44D-3FF9-BB73-7282AADA739A,62B857EA-998B-39AB-B1B0-D1B39015BAFF)
     Route: 048
  2. OLANZAPINE [Suspect]
     Active Substance: OLANZAPINE
     Indication: Hallucination, auditory
     Dosage: UNK
     Route: 048
  3. OLANZAPINE [Suspect]
     Active Substance: OLANZAPINE
     Indication: Drug ineffective
  4. QUETIAPINE [Suspect]
     Active Substance: QUETIAPINE
     Indication: Product used for unknown indication
     Dosage: UNK UNK, (EVERY, FILM-COATED TABLET), ABUSE, MISUSE
     Route: 048
  5. QUETIAPINE [Suspect]
     Active Substance: QUETIAPINE
     Dosage: UNK; TABLET, FILM-COATED TABLET
     Route: 048
  6. HALOPERIDOL [Suspect]
     Active Substance: HALOPERIDOL
     Indication: Schizophrenia
     Dosage: UNK (START 2019)
     Route: 065
  7. HALOPERIDOL [Suspect]
     Active Substance: HALOPERIDOL
     Indication: Hallucination, auditory
     Dosage: UNK (START 2019)
     Route: 065
  8. ARIPIPRAZOLE [Suspect]
     Active Substance: ARIPIPRAZOLE
     Indication: Hallucination, auditory
     Dosage: UNK; MEDICATION ERROR, ABUSE, (SANDOZ/ABILIFY, START DATE: 2019)
     Route: 065
  9. AMISULPRIDE [Suspect]
     Active Substance: AMISULPRIDE
     Indication: Hallucination, auditory
     Dosage: UNK, MISUSE, ABUSE (STRENGTH: 100 MG)
     Route: 048
     Dates: start: 20050215
  10. AMISULPRIDE [Suspect]
     Active Substance: AMISULPRIDE
     Dosage: 100 MILLIGRAM (VAGINAL TABLET)
     Route: 048
     Dates: start: 20050215
  11. HALDOL [Suspect]
     Active Substance: HALOPERIDOL
     Indication: Hallucination, auditory
     Dosage: UNK (STARTED IN 2006, STOPPED IN 05 DEC 2017)
     Route: 065
  12. HALDOL [Suspect]
     Active Substance: HALOPERIDOL
     Indication: Schizophrenia
     Dosage: UNK
     Route: 065
  13. HALDOL [Suspect]
     Active Substance: HALOPERIDOL
     Indication: Hallucination, auditory
     Dosage: UNK (START DATE:2019)
     Route: 065
  14. HALDOL [Suspect]
     Active Substance: HALOPERIDOL
     Dosage: UNK
     Route: 065
  15. CLOZARIL [Suspect]
     Active Substance: CLOZAPINE
     Indication: Schizoaffective disorder
     Dosage: UNK (TABLET)
     Route: 048
     Dates: start: 20150215, end: 20171205
  16. CLOZARIL [Suspect]
     Active Substance: CLOZAPINE
     Indication: Schizophrenia
     Dosage: UNK (TABLET)
     Route: 048
     Dates: start: 20180205
  17. CLOZARIL [Suspect]
     Active Substance: CLOZAPINE
     Indication: Hallucination, auditory
     Dosage: UNK ( START DATE SEP 2019, TABLET)
     Route: 048
  18. CLOZARIL [Suspect]
     Active Substance: CLOZAPINE
     Dosage: UNK (TABLET, STARTED IN SEP 2019), MISUSE, OFF LABEL USE,
     Route: 048
  19. CLOZARIL [Suspect]
     Active Substance: CLOZAPINE
     Dosage: UNK (TABLET)
     Route: 048
     Dates: start: 20180205, end: 20191205
  20. CLOZARIL [Suspect]
     Active Substance: CLOZAPINE
     Dosage: UNK (STARTED IN 2006, STOPPED IN 05 DEC 2017)
     Route: 048
  21. CLOZARIL [Suspect]
     Active Substance: CLOZAPINE
     Dosage: UNK UNK, QD
     Route: 048
     Dates: start: 20050215, end: 20171205
  22. CLOZARIL [Suspect]
     Active Substance: CLOZAPINE
     Dosage: UNK; TABLET (START IN 2006 STOP DATE 05 DEC 2017)
     Route: 048
  23. CLOZARIL [Suspect]
     Active Substance: CLOZAPINE
     Dosage: UNK (STARTED IN SEP 2019)
     Route: 048
  24. CLOZARIL [Suspect]
     Active Substance: CLOZAPINE
     Dosage: UNK, QD (TABLET)
     Route: 048
     Dates: start: 20180205, end: 20191205
  25. CLOZARIL [Suspect]
     Active Substance: CLOZAPINE
     Dosage: UNK (STARTED IN 2019)
     Route: 065
  26. CLOZARIL [Suspect]
     Active Substance: CLOZAPINE
     Dosage: UNK
     Route: 065
     Dates: start: 20171205
  27. CLOZARIL [Suspect]
     Active Substance: CLOZAPINE
     Dosage: UNK
     Route: 065
  28. CLOZARIL [Suspect]
     Active Substance: CLOZAPINE
     Dosage: UNK (TABLET)
     Route: 048
     Dates: start: 20181205, end: 20191205
  29. CLOZARIL [Suspect]
     Active Substance: CLOZAPINE
     Dosage: UNK, TABLET
     Route: 048
     Dates: start: 20050215, end: 20171205
  30. CLOZARIL [Suspect]
     Active Substance: CLOZAPINE
     Dosage: UNK, TABLET
     Route: 048
     Dates: start: 20050215, end: 20071205
  31. RISPERIDONE [Suspect]
     Active Substance: RISPERIDONE
     Indication: Hallucination, auditory
     Dosage: UNK, MISUSE, ABUSE
     Route: 065
  32. RISPERIDONE [Suspect]
     Active Substance: RISPERIDONE
     Indication: Schizophrenia
     Dosage: UNK (ABUSE, OFF LABEL USE, MISUSE)(START DATE 2006 STOP DATE 05 DEC 2017)
     Route: 065
  33. RISPERDAL [Suspect]
     Active Substance: RISPERIDONE
     Indication: Hallucination, auditory
     Dosage: UNK
     Route: 065
  34. RISPERDAL [Suspect]
     Active Substance: RISPERIDONE
     Indication: Schizophrenia
     Dosage: UNK (STARTED IN 2006 STOPPED IN 05 DEC 2017,` MISUSE)
     Route: 065
  35. ZUCLOPENTHIXOL HYDROCHLORIDE [Suspect]
     Active Substance: ZUCLOPENTHIXOL HYDROCHLORIDE
     Indication: Hallucination, auditory
     Dosage: UNK (START IN 2006 AND STOP ON 05 DEC 2017)
     Route: 065
  36. ZUCLOPENTHIXOL HYDROCHLORIDE [Suspect]
     Active Substance: ZUCLOPENTHIXOL HYDROCHLORIDE
     Indication: Schizophrenia
     Dosage: UNK, TABLET, MEDICATION ERROR
     Route: 065
  37. ZUCLOPENTHIXOL HYDROCHLORIDE [Suspect]
     Active Substance: ZUCLOPENTHIXOL HYDROCHLORIDE
     Indication: Schizoaffective disorder

REACTIONS (20)
  - Schizophrenia [Not Recovered/Not Resolved]
  - Schizophrenia [Not Recovered/Not Resolved]
  - Eosinophil count decreased [Recovered/Resolved]
  - Refusal of examination [Unknown]
  - Mental impairment [Not Recovered/Not Resolved]
  - Malaise [Not Recovered/Not Resolved]
  - Malaise [Not Recovered/Not Resolved]
  - Eating disorder [Not Recovered/Not Resolved]
  - Suicidal ideation [Unknown]
  - Leukopenia [Recovered/Resolved]
  - Neutropenia [Recovered/Resolved]
  - Neutropenia [Recovered/Resolved]
  - Intentional product misuse [Unknown]
  - Medication error [Unknown]
  - Drug abuse [Unknown]
  - Product use in unapproved indication [Unknown]
  - Drug ineffective [Unknown]
  - Drug ineffective [Unknown]
  - Food poisoning [Unknown]
  - Gastroenteritis [Unknown]

NARRATIVE: CASE EVENT DATE: 20171204
